FAERS Safety Report 26105131 (Version 1)
Quarter: 2025Q4

REPORT INFORMATION
  Report Type: Report from Study
  Country: AU (occurrence: AU)
  Receive Date: 20251201
  Receipt Date: 20251201
  Transmission Date: 20260117
  Serious: Yes (Other)
  Sender: ROCHE
  Company Number: AU-ROCHE-10000441811

PATIENT
  Age: 22 Year
  Sex: Female

DRUGS (1)
  1. OCREVUS [Suspect]
     Active Substance: OCRELIZUMAB
     Indication: Multiple sclerosis
     Route: 042
     Dates: start: 2025

REACTIONS (4)
  - Pain [Unknown]
  - Somnolence [Recovered/Resolved]
  - Feeling of body temperature change [Recovered/Resolved]
  - Dizziness [Recovered/Resolved]

NARRATIVE: CASE EVENT DATE: 20251120
